FAERS Safety Report 20365248 (Version 11)
Quarter: 2022Q2

REPORT INFORMATION
  Report Type: Spontaneous
  Country: US (occurrence: US)
  Receive Date: 20220122
  Receipt Date: 20220601
  Transmission Date: 20220721
  Serious: Yes (Hospitalization, Other)
  Sender: FDA-Public Use
  Company Number: US-UNITED THERAPEUTICS-UNT-2022-000972

PATIENT
  Age: 62 Year
  Sex: Female
  Weight: 52.154 kg

DRUGS (9)
  1. REMODULIN [Suspect]
     Active Substance: TREPROSTINIL
     Indication: Pulmonary arterial hypertension
     Dosage: UNK, CONTINUING
     Route: 041
     Dates: start: 20211015
  2. REMODULIN [Suspect]
     Active Substance: TREPROSTINIL
     Dosage: 0.015 ?G/KG, CONTINUING
     Route: 041
  3. REMODULIN [Suspect]
     Active Substance: TREPROSTINIL
     Dosage: 0.017 ?G/KG, CONTINUING
     Route: 041
  4. REMODULIN [Suspect]
     Active Substance: TREPROSTINIL
     Dosage: 0.019 ?G/KG, CONTINUING
     Route: 041
  5. REMODULIN [Suspect]
     Active Substance: TREPROSTINIL
     Dosage: 0.020 ?G/KG, CONTINUING
     Route: 041
  6. REMODULIN [Suspect]
     Active Substance: TREPROSTINIL
     Dosage: UNK, CONTINUING
     Route: 041
  7. ADCIRCA [Suspect]
     Active Substance: TADALAFIL
     Indication: Pulmonary arterial hypertension
     Dosage: UNK
     Route: 048
     Dates: start: 20210519
  8. ADCIRCA [Suspect]
     Active Substance: TADALAFIL
     Dosage: 40 MG, QD
     Route: 048
  9. OPSUMIT [Concomitant]
     Active Substance: MACITENTAN
     Indication: Product used for unknown indication
     Dosage: UNK
     Route: 065

REACTIONS (13)
  - Vascular device occlusion [Unknown]
  - Dizziness [Unknown]
  - Atrial fibrillation [Unknown]
  - Hypoxia [Unknown]
  - Dyspnoea [Unknown]
  - Vascular device infection [Unknown]
  - Dermatitis contact [Unknown]
  - Catheter site pain [Unknown]
  - Road traffic accident [Unknown]
  - Back pain [Unknown]
  - Mydriasis [Unknown]
  - Catheter site discharge [Not Recovered/Not Resolved]
  - Tachycardia [Unknown]

NARRATIVE: CASE EVENT DATE: 20211225
